FAERS Safety Report 23441071 (Version 1)
Quarter: 2024Q1

REPORT INFORMATION
  Report Type: Spontaneous
  Country: CN (occurrence: CN)
  Receive Date: 20240125
  Receipt Date: 20240125
  Transmission Date: 20240410
  Serious: Yes (Death, Other)
  Sender: FDA-Public Use
  Company Number: CN-SUN PHARMACEUTICAL INDUSTRIES LTD-2024R1-428444

PATIENT
  Age: 60 Year
  Sex: Male

DRUGS (3)
  1. LEVETIRACETAM [Suspect]
     Active Substance: LEVETIRACETAM
     Indication: Epilepsy
     Dosage: 0.5 GRAM, BID
     Route: 048
  2. VALPROIC ACID [Suspect]
     Active Substance: VALPROIC ACID
     Indication: Epilepsy
     Dosage: 0.5 GRAM, BID
     Route: 048
  3. DIAZEPAM [Suspect]
     Active Substance: DIAZEPAM
     Indication: Epilepsy
     Dosage: 1 MILLILITER
     Route: 042

REACTIONS (2)
  - Disease progression [Fatal]
  - Drug resistance [Unknown]
